FAERS Safety Report 24581054 (Version 4)
Quarter: 2025Q1

REPORT INFORMATION
  Report Type: Spontaneous
  Country: US (occurrence: US)
  Receive Date: 20241105
  Receipt Date: 20250203
  Transmission Date: 20250409
  Serious: No
  Sender: PFIZER
  Company Number: US-PFIZER INC-PV202400142873

PATIENT
  Age: 42 Year
  Sex: Female

DRUGS (2)
  1. TUKYSA [Suspect]
     Active Substance: TUCATINIB
     Indication: Breast cancer female
     Dosage: 300 MG, 2X/DAY (TAKE TWO TABLETS BY MOUTH TWICE A DAY)
     Route: 048
     Dates: end: 20250108
  2. CAPECITABINE [Suspect]
     Active Substance: CAPECITABINE
     Indication: Breast cancer female
     Dates: end: 20250108

REACTIONS (6)
  - Neoplasm progression [Unknown]
  - Thirst [Unknown]
  - Neck pain [Unknown]
  - Depression [Unknown]
  - Off label use [Unknown]
  - Product use issue [Unknown]

NARRATIVE: CASE EVENT DATE: 20241121
